FAERS Safety Report 5153035-8 (Version None)
Quarter: 2006Q4

REPORT INFORMATION
  Report Type: 
  Country: None (occurrence: None)
  Receive Date: 20061113
  Receipt Date: 20061026
  Transmission Date: 20070319
  Serious: Yes (Life-Threatening, Hospitalization)
  Sender: FDA-Public Use
  Company Number: 2006RR-04253

PATIENT
  Age: 71 Year
  Sex: Female
  Weight: 75 kg

DRUGS (9)
  1. METFORMIN HCL [Suspect]
     Indication: DIABETES MELLITUS NON-INSULIN-DEPENDENT
     Dosage: 850 MG, TID, ORAL
     Route: 048
  2. AMLODIPINE [Concomitant]
  3. BEZAFIBRATE [Concomitant]
  4. DOMPERIDONE (DOMPERIDONE) [Concomitant]
  5. GLICLAZIDE (GLICLAZIDE) [Concomitant]
  6. INDAPAMIDE [Concomitant]
  7. NITROFURANTOIN [Concomitant]
  8. PIOGLITAZONE HCL [Concomitant]
  9. RAMIPRIL [Concomitant]

REACTIONS (2)
  - CARDIAC ARREST [None]
  - METABOLIC ACIDOSIS [None]
